FAERS Safety Report 6099338-4 (Version None)
Quarter: 2009Q1

REPORT INFORMATION
  Report Type: 
  Country: None (occurrence: None)
  Receive Date: 20090303
  Receipt Date: 20090220
  Transmission Date: 20090719
  Serious: Yes (Death, Other)
  Sender: FDA-Public Use
  Company Number: GB-JNJFOC-20061105552

PATIENT
  Sex: Male

DRUGS (9)
  1. REMICADE [Suspect]
     Dosage: STOPPED IN FEBRUARY - MARCH (3RD INFUSION)
     Route: 042
  2. REMICADE [Suspect]
     Indication: CROHN'S DISEASE
     Route: 042
  3. MERCAPTOPURINE [Suspect]
     Indication: CROHN'S DISEASE
  4. AZATHIOPRINE [Suspect]
     Route: 065
  5. AZATHIOPRINE [Suspect]
     Route: 065
  6. AZATHIOPRINE [Suspect]
     Indication: DRUG USE FOR UNKNOWN INDICATION
     Dosage: 2.5 MG/KG
     Route: 065
  7. PREDNISOLONE [Suspect]
     Indication: DRUG USE FOR UNKNOWN INDICATION
  8. VIT B12 [Concomitant]
  9. METRONIDAZOLE [Concomitant]

REACTIONS (2)
  - DIABETIC KETOACIDOSIS [None]
  - HEPATOSPLENIC T-CELL LYMPHOMA [None]
